FAERS Safety Report 10051023 (Version 4)
Quarter: 2014Q2

REPORT INFORMATION
  Report Type: Report from Study
  Country: TW (occurrence: TW)
  Receive Date: 20140401
  Receipt Date: 20140611
  Transmission Date: 20141212
  Serious: Yes (Hospitalization)
  Sender: FDA-Public Use
  Company Number: TW-ABBVIE-14P-153-1215195-00

PATIENT
  Age: 43 Year
  Sex: Male
  Weight: 92 kg

DRUGS (3)
  1. HUMIRA [Suspect]
     Indication: RHEUMATOID ARTHRITIS
     Route: 058
     Dates: start: 20110224, end: 20140312
  2. HUMIRA [Suspect]
     Dates: start: 20140429
  3. MTX [Concomitant]
     Indication: RHEUMATOID ARTHRITIS
     Route: 048
     Dates: start: 20130327, end: 20140318

REACTIONS (6)
  - Nephrolithiasis [Unknown]
  - Cholelithiasis [Unknown]
  - Hepatic cirrhosis [Unknown]
  - Hepatic steatosis [Unknown]
  - Lower respiratory tract inflammation [Unknown]
  - Scoliosis [Unknown]
